FAERS Safety Report 9374366 (Version 1)
Quarter: 2013Q2

REPORT INFORMATION
  Report Type: Report from Study
  Country: AR (occurrence: AR)
  Receive Date: 20130628
  Receipt Date: 20130628
  Transmission Date: 20140414
  Serious: Yes (Hospitalization, Other)
  Sender: FDA-Public Use
  Company Number: PHHY2013AR066597

PATIENT
  Sex: Female

DRUGS (1)
  1. DIOVAN D [Suspect]
     Indication: HYPERTENSION
     Dosage: 1 DF, (160 MG VALS/ 12,5 MG HYDRO) DAILY
     Route: 048

REACTIONS (2)
  - Diabetic coma [Recovering/Resolving]
  - Blood glucose decreased [Recovering/Resolving]
